FAERS Safety Report 6810719-0 (Version None)
Quarter: 2010Q2

REPORT INFORMATION
  Report Type: 
  Country: None (occurrence: None)
  Receive Date: 20100630
  Receipt Date: 20070601
  Transmission Date: 20101027
  Serious: No
  Sender: FDA-Public Use
  Company Number: US-PFIZER INC-2007042744

PATIENT
  Sex: Female
  Weight: 71 kg

DRUGS (7)
  1. ESTRING [Suspect]
     Indication: REPRODUCTIVE TRACT DISORDER
     Route: 050
     Dates: start: 20070301, end: 20070323
  2. SYNTHROID [Concomitant]
     Indication: THYROID DISORDER
  3. MELOXICAM [Concomitant]
     Indication: FIBROMYALGIA
  4. VIVELLE [Concomitant]
     Indication: REPRODUCTIVE TRACT DISORDER
  5. FLEXERIL [Concomitant]
     Indication: INSOMNIA
  6. CLONAZEPAM [Concomitant]
     Indication: INSOMNIA
  7. LISINOPRIL AND HYDROCHLOROTHIAZIDE [Concomitant]
     Indication: HYPERTENSION

REACTIONS (2)
  - FUNGAL INFECTION [None]
  - VULVOVAGINAL ERYTHEMA [None]
